FAERS Safety Report 18111279 (Version 1)
Quarter: 2020Q3

REPORT INFORMATION
  Report Type: Spontaneous
  Country: US (occurrence: US)
  Receive Date: 20200805
  Receipt Date: 20200805
  Transmission Date: 20201103
  Serious: No
  Sender: FDA-Public Use
  Company Number: US-SA-2020SA201670

PATIENT

DRUGS (4)
  1. LEFLUNOMIDE. [Suspect]
     Active Substance: LEFLUNOMIDE
     Dosage: UNK
     Route: 065
  2. XELJANZ [Suspect]
     Active Substance: TOFACITINIB CITRATE
     Indication: RHEUMATOID ARTHRITIS
     Dosage: 5 MG, BID
     Route: 048
     Dates: start: 201904
  3. METHOTREXATE. [Suspect]
     Active Substance: METHOTREXATE
     Dosage: UNK
     Route: 065
  4. PLAQUENIL [Suspect]
     Active Substance: HYDROXYCHLOROQUINE SULFATE
     Dosage: UNK
     Route: 065

REACTIONS (16)
  - Pruritus [Unknown]
  - Fatigue [Unknown]
  - Joint swelling [Unknown]
  - Urticaria [Unknown]
  - Hypertension [Unknown]
  - Insomnia [Unknown]
  - Illness [Unknown]
  - Skin haemorrhage [Unknown]
  - Feeling abnormal [Unknown]
  - Dysarthria [Unknown]
  - Pain [Unknown]
  - Swollen tongue [Unknown]
  - Lethargy [Unknown]
  - Stress [Unknown]
  - Epistaxis [Unknown]
  - Drug ineffective [Unknown]
